FAERS Safety Report 5719502-0 (Version None)
Quarter: 2008Q2

REPORT INFORMATION
  Report Type: 
  Country: None (occurrence: None)
  Receive Date: 20080428
  Receipt Date: 20080418
  Transmission Date: 20081010
  Serious: Yes (Death, Hospitalization)
  Sender: FDA-Public Use
  Company Number: US-ROCHE-559564

PATIENT
  Sex: Male

DRUGS (11)
  1. CELLCEPT [Suspect]
     Route: 048
     Dates: start: 20050723, end: 20080411
  2. PROGRAF [Concomitant]
     Dosage: DOSE: 3 MG IN MORNING AND 2 MG IN EVENING
     Route: 048
     Dates: start: 20050723, end: 20080411
  3. PLAVIX [Concomitant]
  4. ASPIRIN [Concomitant]
     Route: 048
  5. LEVOTHYROXINE SODIUM [Concomitant]
     Indication: THYROID DISORDER
  6. PEPCID [Concomitant]
     Dosage: FREQUENCY: AS NEEDED
  7. ZOCOR [Concomitant]
  8. NIFEDIPINE [Concomitant]
  9. DOCUSATE [Concomitant]
     Indication: CONSTIPATION
  10. CALCIUM [Concomitant]
  11. VITAMIN D [Concomitant]
     Dosage: DOSE: ^1^ BID

REACTIONS (6)
  - ABDOMINAL MASS [None]
  - DIARRHOEA [None]
  - INTESTINAL OPERATION [None]
  - MULTI-ORGAN FAILURE [None]
  - PAIN [None]
  - PNEUMONIA [None]
